FAERS Safety Report 9816594 (Version 1)
Quarter: 2014Q1

REPORT INFORMATION
  Report Type: Spontaneous
  Country: US (occurrence: US)
  Receive Date: 20140114
  Receipt Date: 20140114
  Transmission Date: 20141002
  Serious: Yes (Death)
  Sender: FDA-Public Use
  Company Number: US-PFIZER INC-2014007423

PATIENT
  Age: 37 Year
  Sex: Female

DRUGS (6)
  1. MORPHINE SULFATE [Suspect]
  2. CITALOPRAM [Suspect]
  3. DIAZEPAM [Suspect]
     Route: 048
  4. LAMOTRIGINE [Suspect]
  5. CLONAZEPAM [Suspect]
  6. MARIJUANA [Suspect]

REACTIONS (3)
  - Intentional drug misuse [Fatal]
  - Cardiac arrest [Fatal]
  - Respiratory arrest [Fatal]
